FAERS Safety Report 13305923 (Version 3)
Quarter: 2023Q2

REPORT INFORMATION
  Report Type: Spontaneous
  Country: TH (occurrence: TH)
  Receive Date: 20170308
  Receipt Date: 20230512
  Transmission Date: 20230722
  Serious: Yes (Other)
  Sender: FDA-Public Use
  Company Number: TH-AMGEN-THASP2017031412

PATIENT

DRUGS (2)
  1. CINACALCET HYDROCHLORIDE [Suspect]
     Active Substance: CINACALCET HYDROCHLORIDE
     Indication: Hyperparathyroidism secondary
     Dosage: 25 MILLIGRAM, QD (FOR 16 WEEKS)
     Route: 065
  2. CINACALCET HYDROCHLORIDE [Suspect]
     Active Substance: CINACALCET HYDROCHLORIDE
     Dosage: 25 MILLIGRAM (ALTERNATE DAY) (FOR 16 WEEKS)
     Route: 065

REACTIONS (3)
  - Gastrointestinal disorder [Unknown]
  - Adverse event [Unknown]
  - Hypocalcaemia [Unknown]
